FAERS Safety Report 24117995 (Version 1)
Quarter: 2024Q3

REPORT INFORMATION
  Report Type: Spontaneous
  Country: US (occurrence: US)
  Receive Date: 20240722
  Receipt Date: 20240722
  Transmission Date: 20241017
  Serious: Yes (Other)
  Sender: STEMLINE THERAPEUTICS
  Company Number: US-Stemline Therapeutics, Inc.-2024ST004297

PATIENT
  Age: 62 Year
  Sex: Female

DRUGS (1)
  1. ORSERDU [Suspect]
     Active Substance: ELACESTRANT
     Indication: Product used for unknown indication
     Route: 048
     Dates: start: 20240608

REACTIONS (7)
  - Foreign body in throat [Unknown]
  - Weight decreased [Unknown]
  - Product use complaint [Unknown]
  - Dysphagia [Unknown]
  - Feeding disorder [Unknown]
  - Oropharyngeal discomfort [Unknown]
  - Pain [Unknown]
